FAERS Safety Report 21014730 (Version 3)
Quarter: 2022Q3

REPORT INFORMATION
  Report Type: Report from Study
  Country: CA (occurrence: CA)
  Receive Date: 20220628
  Receipt Date: 20220725
  Transmission Date: 20221027
  Serious: Yes (Other)
  Sender: FDA-Public Use
  Company Number: CA-BRISTOL-MYERS SQUIBB COMPANY-2022-039509

PATIENT
  Age: 65 Year
  Sex: Male
  Weight: 67 kg

DRUGS (2)
  1. OPDIVO [Suspect]
     Active Substance: NIVOLUMAB
     Indication: Oesophageal carcinoma
     Dosage: BATCH NUMBER: 190591?EXPIRY DATE: 31-JAN-2024
     Route: 042
     Dates: start: 20220421
  2. MORNIFLUMATE [Concomitant]
     Active Substance: MORNIFLUMATE
     Indication: Product used for unknown indication

REACTIONS (14)
  - Oesophageal adenocarcinoma [Unknown]
  - Nausea [Unknown]
  - Condition aggravated [Unknown]
  - Malaise [Unknown]
  - Dyspnoea [Unknown]
  - Anxiety [Unknown]
  - Dysphagia [Unknown]
  - Vomiting [Unknown]
  - Fatigue [Unknown]
  - Anxiety [Unknown]
  - Somnolence [Unknown]
  - Decreased appetite [Unknown]
  - Depression [Unknown]
  - Malignant neoplasm progression [Not Recovered/Not Resolved]
